FAERS Safety Report 12955554 (Version 2)
Quarter: 2016Q4

REPORT INFORMATION
  Report Type: Spontaneous
  Country: US (occurrence: US)
  Receive Date: 20161118
  Receipt Date: 20161216
  Transmission Date: 20170207
  Serious: Yes (Other)
  Sender: FDA-Public Use
  Company Number: US-009507513-1611USA003788

PATIENT
  Age: 66 Year
  Sex: Female
  Weight: 90.26 kg

DRUGS (10)
  1. CALCIUM CITRATE (+) CHOLECALCIFEROL [Concomitant]
     Active Substance: CALCIUM CITRATE\CHOLECALCIFEROL
     Indication: BONE DISORDER
     Dosage: 630 MG, TWICE A DAY
  2. CHOLECALCIFEROL [Concomitant]
     Active Substance: CHOLECALCIFEROL
     Dosage: 1000 IU ONCE A DAY IN THE EVENING
  3. ZOCOR [Suspect]
     Active Substance: SIMVASTATIN
     Indication: BLOOD CHOLESTEROL ABNORMAL
     Dosage: 20 MG TABLET ONCE A DAY IN THE EVENING
     Route: 048
     Dates: start: 2008
  4. AROMASIN [Suspect]
     Active Substance: EXEMESTANE
     Dosage: 25 MG ONCE IN THE EVENING
     Route: 048
     Dates: start: 20160915
  5. CYMBALTA [Suspect]
     Active Substance: DULOXETINE HYDROCHLORIDE
     Indication: FIBROMYALGIA
     Dosage: 30 MG, ONCE A DAY
     Route: 048
  6. OMEPRAZOLE. [Concomitant]
     Active Substance: OMEPRAZOLE
     Indication: GASTROOESOPHAGEAL REFLUX DISEASE
     Dosage: 20 MG FIRST THING IN THE MORNING
  7. AROMASIN [Suspect]
     Active Substance: EXEMESTANE
     Indication: CANCER HORMONAL THERAPY
     Dosage: 25 MG ONCE IN THE EVENING
     Route: 048
     Dates: start: 201604, end: 20160904
  8. CYMBALTA [Suspect]
     Active Substance: DULOXETINE HYDROCHLORIDE
     Dosage: 60 MG, ONCE A DAY
  9. MAGNESIUM (UNSPECIFIED) [Concomitant]
     Active Substance: MAGNESIUM
     Dosage: 250 MG, TWICE A DAY
  10. DULOXETINE HYDROCHLORIDE. [Suspect]
     Active Substance: DULOXETINE HYDROCHLORIDE
     Indication: FIBROMYALGIA
     Dosage: 60 MG, EVERY DAY
     Route: 048

REACTIONS (7)
  - Feeling abnormal [Recovering/Resolving]
  - Weight increased [Not Recovered/Not Resolved]
  - Breast cancer [Not Recovered/Not Resolved]
  - Pain in extremity [Unknown]
  - Fibromyalgia [Not Recovered/Not Resolved]
  - Memory impairment [Not Recovered/Not Resolved]
  - Dizziness [Not Recovered/Not Resolved]

NARRATIVE: CASE EVENT DATE: 201508
